FAERS Safety Report 9030840 (Version 3)
Quarter: 2015Q2

REPORT INFORMATION
  Report Type: Spontaneous
  Country: US (occurrence: US)
  Receive Date: 20130123
  Receipt Date: 20150526
  Transmission Date: 20150821
  Serious: Yes (Other)
  Sender: FDA-Public Use
  Company Number: US-JNJFOC-20130104399

PATIENT
  Age: 55 Year
  Sex: Female
  Weight: 95.71 kg

DRUGS (2)
  1. UNKNOWN MEDICATION [Suspect]
     Active Substance: UNSPECIFIED INGREDIENT
     Indication: SCHIZOPHRENIA
     Route: 065
  2. RISPERDAL CONSTA [Suspect]
     Active Substance: RISPERIDONE
     Indication: SCHIZOPHRENIA
     Route: 030
     Dates: start: 2007, end: 2007

REACTIONS (8)
  - Infection [Unknown]
  - Nausea [Recovered/Resolved]
  - Post-traumatic stress disorder [Unknown]
  - Blood disorder [Unknown]
  - Pain [Recovered/Resolved]
  - Drug prescribing error [Unknown]
  - Dizziness [Recovered/Resolved]
  - Eye disorder [Unknown]

NARRATIVE: CASE EVENT DATE: 2007
